FAERS Safety Report 24755034 (Version 1)
Quarter: 2024Q4

REPORT INFORMATION
  Report Type: Spontaneous
  Country: PL (occurrence: PL)
  Receive Date: 20241219
  Receipt Date: 20241219
  Transmission Date: 20250114
  Serious: Yes (Hospitalization, Other)
  Sender: GILEAD
  Company Number: PL-GILEAD-2024-0697239

PATIENT
  Age: 35 Year
  Sex: Male

DRUGS (13)
  1. BIKTARVY [Suspect]
     Active Substance: BICTEGRAVIR SODIUM\EMTRICITABINE\TENOFOVIR ALAFENAMIDE FUMARATE
     Indication: HIV infection
     Dosage: UNK
     Route: 065
     Dates: start: 20240307
  2. VITAMIN D NOS [Concomitant]
     Active Substance: CHOLECALCIFEROL\ERGOCALCIFEROL
  3. IRON [Concomitant]
     Active Substance: IRON
  4. FOLIC ACID [Concomitant]
     Active Substance: FOLIC ACID
  5. DANAZOL [Concomitant]
     Active Substance: DANAZOL
  6. PREDNISONE [Concomitant]
     Active Substance: PREDNISONE
  7. AZATHIOPRINE [Concomitant]
     Active Substance: AZATHIOPRINE
  8. ROMIPLOSTIM [Concomitant]
     Active Substance: ROMIPLOSTIM
  9. DEXAMETHASONE [Concomitant]
     Active Substance: DEXAMETHASONE
     Dosage: 40 MG, QD
  10. RAMIPRIL [Concomitant]
     Active Substance: RAMIPRIL
  11. PANTOPRAZOLE [Concomitant]
     Active Substance: PANTOPRAZOLE
  12. HUMAN IMMUNOGLOBULIN G [Concomitant]
     Active Substance: HUMAN IMMUNOGLOBULIN G
     Dosage: 1G/KG
  13. METRONIDAZOLE [Concomitant]
     Active Substance: METRONIDAZOLE

REACTIONS (12)
  - Drug-induced liver injury [Unknown]
  - Hepatomegaly [Unknown]
  - Splenomegaly [Unknown]
  - Alanine aminotransferase increased [Recovered/Resolved]
  - Hypergammaglobulinaemia [Unknown]
  - Haemorrhage [Unknown]
  - Anaemia [Unknown]
  - Thrombocytopenia [Unknown]
  - Leukocytosis [Unknown]
  - COVID-19 [Unknown]
  - Vomiting [Unknown]
  - Diarrhoea [Unknown]
